FAERS Safety Report 22694042 (Version 11)
Quarter: 2025Q2

REPORT INFORMATION
  Report Type: Report from Study
  Country: CA (occurrence: CA)
  Receive Date: 20230711
  Receipt Date: 20250523
  Transmission Date: 20250716
  Serious: Yes (Hospitalization, Other)
  Sender: BAUSCH AND LOMB
  Company Number: CA-BAUSCH-BL-2022-011694

PATIENT
  Age: 97 Year
  Sex: Female

DRUGS (3)
  1. SILIQ [Suspect]
     Active Substance: BRODALUMAB
     Indication: Psoriasis
     Dosage: 210MG/ 1.5 ML, WEEKLY (WEEK 0, 1 AND 2)
     Route: 058
     Dates: start: 20210805, end: 20210817
  2. SILIQ [Suspect]
     Active Substance: BRODALUMAB
     Dosage: 210MG/ 1.5 ML, Q 2 WEEKS
     Route: 058
     Dates: start: 202109
  3. SYNTHROID [Concomitant]
     Active Substance: LEVOTHYROXINE SODIUM
     Indication: Product used for unknown indication

REACTIONS (10)
  - Atrial flutter [Recovering/Resolving]
  - Heart rate increased [Recovering/Resolving]
  - Blood pressure systolic increased [Not Recovered/Not Resolved]
  - Cellulitis [Unknown]
  - Pneumonia [Recovering/Resolving]
  - Malaise [Unknown]
  - Asthenia [Not Recovered/Not Resolved]
  - Cough [Recovering/Resolving]
  - Fall [Recovering/Resolving]
  - Nasopharyngitis [Recovering/Resolving]

NARRATIVE: CASE EVENT DATE: 20220101
